FAERS Safety Report 9220465 (Version 1)
Quarter: 2013Q1

REPORT INFORMATION
  Report Type: Spontaneous
  Country: US (occurrence: None)
  Receive Date: 20120830
  Receipt Date: 20120830
  Transmission Date: 20140127
  Serious: Yes (Hospitalization)
  Sender: FDA-Public Use
  Company Number: PHEH2012US010502

PATIENT
  Age: 65 Year
  Sex: Female
  Weight: 57.6 kg

DRUGS (1)
  1. SANDOSTATIN LAR [Suspect]
     Indication: CARCINOID SYNDROME
     Dosage: Q 28 DAYS
     Route: 030
     Dates: start: 20110124, end: 20120518

REACTIONS (1)
  - Pneumonia [None]
